FAERS Safety Report 20964285 (Version 1)
Quarter: 2022Q2

REPORT INFORMATION
  Report Type: Spontaneous
  Country: US (occurrence: US)
  Receive Date: 20220615
  Receipt Date: 20220615
  Transmission Date: 20220721
  Serious: No
  Sender: FDA-Public Use
  Company Number: US-BRISTOL-MYERS SQUIBB COMPANY-2022-052677

PATIENT
  Age: 82 Year
  Sex: Male
  Weight: 98.88 kg

DRUGS (6)
  1. ELIQUIS [Suspect]
     Active Substance: APIXABAN
     Indication: Cerebrovascular accident prophylaxis
     Dates: start: 2005
  2. LISINOPRIL [Concomitant]
     Active Substance: LISINOPRIL
     Indication: Blood pressure measurement
  3. SOTALOL [Concomitant]
     Active Substance: SOTALOL
     Indication: Cardiac disorder
  4. FINASTERIDE [Concomitant]
     Active Substance: FINASTERIDE
     Indication: Blood pressure measurement
  5. ROSUVASTATIN [Concomitant]
     Active Substance: ROSUVASTATIN
     Indication: Arterial disorder
  6. OMEGA 3S [Concomitant]
     Indication: Thrombosis prophylaxis

REACTIONS (1)
  - Wound haemorrhage [Unknown]

NARRATIVE: CASE EVENT DATE: 20220101
